FAERS Safety Report 9335983 (Version 2)
Quarter: 2013Q2

REPORT INFORMATION
  Report Type: Spontaneous
  Country: JP (occurrence: JP)
  Receive Date: 20130606
  Receipt Date: 20130612
  Transmission Date: 20140414
  Serious: Yes (Other)
  Sender: FDA-Public Use
  Company Number: JP-009507513-1306JPN000675

PATIENT
  Age: 72 Year
  Sex: Female

DRUGS (1)
  1. DEXAMETHASONE [Suspect]

REACTIONS (3)
  - Cytomegalovirus viraemia [Recovering/Resolving]
  - Septic shock [Recovering/Resolving]
  - Disseminated tuberculosis [Recovered/Resolved]
